FAERS Safety Report 6124258-6 (Version None)
Quarter: 2009Q1

REPORT INFORMATION
  Report Type: 
  Country: None (occurrence: None)
  Receive Date: 20090319
  Receipt Date: 20090309
  Transmission Date: 20090719
  Serious: Yes (Death)
  Sender: FDA-Public Use
  Company Number: DE-WATSON-2009-01612

PATIENT
  Age: 50 Year
  Sex: Female

DRUGS (4)
  1. PREDNISOLONE (WATSON LABORATORIES) [Suspect]
     Indication: CUTANEOUS LUPUS ERYTHEMATOSUS
     Dosage: 4 - 12 MG, DAILY
     Dates: start: 19820101, end: 20010101
  2. METHYLPREDNISOLONE [Suspect]
     Indication: CUTANEOUS LUPUS ERYTHEMATOSUS
     Dosage: 4 - 12 MG, DAILY
     Dates: start: 19820101
  3. CHLOROQUINE (WATSON LABORATORIES) [Suspect]
     Indication: CUTANEOUS LUPUS ERYTHEMATOSUS
     Dosage: 250 MG, DAILY
     Route: 048
     Dates: start: 19810101, end: 19860101
  4. AZATHIOPRINE [Suspect]
     Indication: CUTANEOUS LUPUS ERYTHEMATOSUS
     Dosage: 100-200 MG/DAY
     Dates: start: 19860101, end: 20010101

REACTIONS (1)
  - BREAST CANCER [None]
